FAERS Safety Report 8849505 (Version 1)
Quarter: 2012Q4

REPORT INFORMATION
  Report Type: Spontaneous
  Country: US (occurrence: None)
  Receive Date: 20121018
  Receipt Date: 20121018
  Transmission Date: 20130627
  Serious: Yes (Other)
  Sender: FDA-Public Use
  Company Number: None

PATIENT
  Age: 46 Year
  Sex: Female
  Weight: 89.36 kg

DRUGS (1)
  1. CYMBALTA [Suspect]
     Indication: FIBROMYALGIA
     Dosage: 120 mg. Daily po
     Route: 048
     Dates: start: 20110207, end: 20121017

REACTIONS (6)
  - Drug dependence [None]
  - Hallucination, visual [None]
  - Hallucination, auditory [None]
  - Homicidal ideation [None]
  - Fear [None]
  - Withdrawal syndrome [None]
